FAERS Safety Report 8264537-X (Version None)
Quarter: 2012Q2

REPORT INFORMATION
  Report Type: 
  Country: None (occurrence: None)
  Receive Date: 20120406
  Receipt Date: 20120329
  Transmission Date: 20120825
  Serious: Yes (Hospitalization)
  Sender: FDA-Public Use
  Company Number: US-AMGEN-USASP2012020308

PATIENT
  Age: 65 Year
  Sex: Male

DRUGS (2)
  1. ENBREL [Suspect]
     Indication: PSORIATIC ARTHROPATHY
     Dosage: 50 MG, QWK
     Dates: start: 20060822, end: 20120226
  2. ENBREL [Suspect]
     Indication: PSORIASIS

REACTIONS (16)
  - MYOCARDIAL INFARCTION [None]
  - VOMITING [None]
  - EYE PAIN [None]
  - LACRIMATION INCREASED [None]
  - ABDOMINAL DISCOMFORT [None]
  - OROPHARYNGEAL PAIN [None]
  - RHINORRHOEA [None]
  - ARTHRITIS [None]
  - HEADACHE [None]
  - RASH [None]
  - NAUSEA [None]
  - EYE IRRITATION [None]
  - OCULAR HYPERAEMIA [None]
  - HYPERHIDROSIS [None]
  - SNEEZING [None]
  - INJECTION SITE PAIN [None]
